FAERS Safety Report 8031843-3 (Version None)
Quarter: 2012Q1

REPORT INFORMATION
  Report Type: 
  Country: None (occurrence: None)
  Receive Date: 20120109
  Receipt Date: 20111229
  Transmission Date: 20120608
  Serious: Yes (Hospitalization, Other)
  Sender: FDA-Public Use
  Company Number: US-ASTRAZENECA-2011SE71866

PATIENT
  Age: 63 Year
  Sex: Male

DRUGS (3)
  1. METOPROLOL TARTRATE [Concomitant]
  2. CRESTOR [Suspect]
     Route: 048
  3. TAMSULOSIN HCL [Concomitant]

REACTIONS (1)
  - PROSTATE CANCER [None]
